FAERS Safety Report 14125147 (Version 2)
Quarter: 2017Q4

REPORT INFORMATION
  Report Type: Report from Study
  Country: AR (occurrence: AR)
  Receive Date: 20171025
  Receipt Date: 20171122
  Transmission Date: 20180321
  Serious: Yes (Other)
  Sender: FDA-Public Use
  Company Number: PHHY2017AR155166

PATIENT
  Sex: Female

DRUGS (2)
  1. EXFORGE [Suspect]
     Active Substance: AMLODIPINE BESYLATE\VALSARTAN
     Indication: NERVOUSNESS
     Dosage: 2 DF (AMLODIPINE 5 MG/HYDROCHLOORTHIAZIDE 12.5 MG/VALSARTAN 160 MG), QD
     Route: 065
  2. EXFORGE [Suspect]
     Active Substance: AMLODIPINE BESYLATE\VALSARTAN
     Indication: HYPERTENSION
     Dosage: 1 DF (AMLODIPINE 5 MG/HYDROCHLOORTHIAZIDE 12.5 MG/VALSARTAN 160 MG), QD
     Route: 065

REACTIONS (4)
  - Eyelid disorder [Unknown]
  - Visual impairment [Unknown]
  - Blood pressure increased [Recovered/Resolved]
  - Visual acuity reduced [Unknown]
